FAERS Safety Report 22089572 (Version 1)
Quarter: 2023Q1

REPORT INFORMATION
  Report Type: Report from Study
  Country: US (occurrence: None)
  Receive Date: 20230313
  Receipt Date: 20230313
  Transmission Date: 20230417
  Serious: Yes (Hospitalization)
  Sender: FDA-Public Use
  Company Number: 2023A055716

PATIENT
  Sex: Female

DRUGS (1)
  1. LYNPARZA [Suspect]
     Active Substance: OLAPARIB
     Indication: Breast cancer female
     Route: 048

REACTIONS (7)
  - Thyroid disorder [Unknown]
  - Fatigue [Unknown]
  - Pain [Unknown]
  - Retching [Unknown]
  - Illness [Unknown]
  - Dizziness [Unknown]
  - Product dose omission issue [Unknown]
